FAERS Safety Report 9440673 (Version 2)
Quarter: 2013Q4

REPORT INFORMATION
  Report Type: Spontaneous
  Country: FR (occurrence: FR)
  Receive Date: 20130805
  Receipt Date: 20131017
  Transmission Date: 20140711
  Serious: Yes (Life-Threatening, Hospitalization, Other)
  Sender: FDA-Public Use
  Company Number: FR-SHIRE-ALL1-2013-05132

PATIENT
  Age: 44 Year
  Sex: Female

DRUGS (2)
  1. 422 (ANAGRELIDE) [Suspect]
     Indication: ESSENTIAL THROMBOCYTHAEMIA
     Dosage: 1 MG, 1X/DAY:QD (TWO-0.5MG TABLETS IN THE MORNING)
     Route: 048
     Dates: start: 201204, end: 201207
  2. 422 (ANAGRELIDE) [Suspect]
     Dosage: 1.5 MG, 1X/DAY:QD (THREE-0.5MG TABLETS IN THE EVENING)
     Dates: start: 201204, end: 201207

REACTIONS (2)
  - Myocarditis [Unknown]
  - Acute myocardial infarction [Recovered/Resolved with Sequelae]
